FAERS Safety Report 4745772-1 (Version None)
Quarter: 2005Q3

REPORT INFORMATION
  Report Type: 
  Country: None (occurrence: None)
  Receive Date: 20050815
  Receipt Date: 20050815
  Transmission Date: 20060218
  Serious: Yes (Hospitalization)
  Sender: FDA-Public Use
  Company Number: None

PATIENT
  Age: 78 Year
  Sex: Male
  Weight: 87.5442 kg

DRUGS (4)
  1. RISPERIDONE  1 MG    JANNSEN [Suspect]
     Indication: ABNORMAL BEHAVIOUR
     Dosage: 1 QAM, 0.5 Q 4 PM, 1.5 QHS  ORAL
     Route: 048
  2. RISPERIDONE  1 MG    JANNSEN [Suspect]
     Indication: DEMENTIA
     Dosage: 1 QAM, 0.5 Q 4 PM, 1.5 QHS  ORAL
     Route: 048
  3. SERTRALINE HCL [Suspect]
     Indication: ABNORMAL BEHAVIOUR
     Dosage: 150 MG  QD  ORAL
     Route: 048
  4. SERTRALINE HCL [Suspect]
     Indication: DEMENTIA
     Dosage: 150 MG  QD  ORAL
     Route: 048

REACTIONS (11)
  - AUTONOMIC NERVOUS SYSTEM IMBALANCE [None]
  - BACTERIA URINE IDENTIFIED [None]
  - BLOOD CREATINE PHOSPHOKINASE INCREASED [None]
  - BLOOD PRESSURE INCREASED [None]
  - FALL [None]
  - LEUKOCYTOSIS [None]
  - MUSCLE RIGIDITY [None]
  - NEUROLEPTIC MALIGNANT SYNDROME [None]
  - PYREXIA [None]
  - SEROTONIN SYNDROME [None]
  - TREMOR [None]
